FAERS Safety Report 14308465 (Version 1)
Quarter: 2017Q4

REPORT INFORMATION
  Report Type: Spontaneous
  Country: AU (occurrence: AU)
  Receive Date: 20171220
  Receipt Date: 20171220
  Transmission Date: 20180321
  Serious: Yes (Other)
  Sender: FDA-Public Use
  Company Number: AU-PFIZER INC-2017319786

PATIENT
  Age: 56 Year
  Sex: Male
  Weight: 121 kg

DRUGS (9)
  1. CLOPINE [Suspect]
     Active Substance: CLOZAPINE
     Dosage: 12.5 MG, DAILY
     Dates: start: 20170824
  2. CLOPINE [Suspect]
     Active Substance: CLOZAPINE
     Indication: SCHIZOPHRENIA
     Dosage: UNK
     Dates: start: 20080422
  3. ASPIRIN /00002701/ [Concomitant]
     Active Substance: ASPIRIN
     Dosage: 100 MG, DAILY
  4. METFORMIN [Concomitant]
     Active Substance: METFORMIN HYDROCHLORIDE
     Indication: TYPE 2 DIABETES MELLITUS
     Dosage: 500 MG, 1X/DAY MANE
  5. CLOZAPINE. [Suspect]
     Active Substance: CLOZAPINE
     Indication: SCHIZOPHRENIA
     Dosage: UNK
     Dates: start: 19951127
  6. PANTOPRAZOLE [Suspect]
     Active Substance: PANTOPRAZOLE
     Dosage: 40 MG, DAILY
  7. METOPROLOL. [Concomitant]
     Active Substance: METOPROLOL
     Dosage: 50 MG, 2X/DAY
  8. CLOPINE [Suspect]
     Active Substance: CLOZAPINE
     Dosage: 700 MG, DAILY (100 MG IN THE MORNING AND 600 MG NIGHT)
     Dates: end: 20170728
  9. ISOSORBIDE MONONITRATE. [Concomitant]
     Active Substance: ISOSORBIDE MONONITRATE
     Dosage: 60 MG, 1X/DAY

REACTIONS (4)
  - Chest pain [Unknown]
  - Dyspnoea exertional [Not Recovered/Not Resolved]
  - Electrocardiogram ST segment elevation [Unknown]
  - Speech disorder [Unknown]

NARRATIVE: CASE EVENT DATE: 20170619
